FAERS Safety Report 11038635 (Version 3)
Quarter: 2015Q3

REPORT INFORMATION
  Report Type: Spontaneous
  Country: US (occurrence: US)
  Receive Date: 20150416
  Receipt Date: 20150820
  Transmission Date: 20151125
  Serious: Yes (Hospitalization, Other)
  Sender: FDA-Public Use
  Company Number: US-009507513-1504USA015478

PATIENT
  Sex: Male
  Weight: 79.37 kg

DRUGS (1)
  1. JANUVIA [Suspect]
     Active Substance: SITAGLIPTIN PHOSPHATE
     Indication: TYPE 2 DIABETES MELLITUS
     Dosage: 100 MG, QD
     Route: 048
     Dates: start: 20070613, end: 200905

REACTIONS (13)
  - Dehydration [Unknown]
  - Inguinal hernia repair [Unknown]
  - Hepatic lesion [Unknown]
  - Pancreaticoduodenectomy [Unknown]
  - Pancreatitis chronic [Not Recovered/Not Resolved]
  - Benign prostatic hyperplasia [Unknown]
  - Neuropathy peripheral [Unknown]
  - Cyst removal [Unknown]
  - Ductal adenocarcinoma of pancreas [Unknown]
  - Bile duct stent insertion [Unknown]
  - Pain in extremity [Recovering/Resolving]
  - Genital disorder male [Unknown]
  - Duodenal ulcer [Unknown]

NARRATIVE: CASE EVENT DATE: 200712
